FAERS Safety Report 8547849-1 (Version None)
Quarter: 2012Q3

REPORT INFORMATION
  Report Type: 
  Country: None (occurrence: None)
  Receive Date: 20120727
  Receipt Date: 20120723
  Transmission Date: 20120928
  Serious: Yes (Life-Threatening, Other)
  Sender: FDA-Public Use
  Company Number: US-ASTRAZENECA-2012SE52024

PATIENT
  Age: 64 Year
  Sex: Female

DRUGS (10)
  1. HYDROCODONE BITARTRATE [Concomitant]
  2. PRISTIQ [Concomitant]
  3. LORAZEPAM [Concomitant]
  4. METOPROLOL TARTRATE [Concomitant]
  5. NEURON [Concomitant]
  6. ROBAXIN [Concomitant]
  7. THYROID TAB [Concomitant]
  8. TRICOR [Concomitant]
  9. LIPITOR [Concomitant]
  10. LISINOPRIL [Suspect]
     Route: 048

REACTIONS (1)
  - ANAPHYLACTIC SHOCK [None]
